FAERS Safety Report 21172119 (Version 2)
Quarter: 2022Q3

REPORT INFORMATION
  Report Type: Spontaneous
  Country: GB (occurrence: GB)
  Receive Date: 20220804
  Receipt Date: 20220815
  Transmission Date: 20221026
  Serious: Yes (Hospitalization, Other)
  Sender: FDA-Public Use
  Company Number: GB-BAUSCH-BL-2022-019326

PATIENT
  Sex: Male

DRUGS (10)
  1. DILTIAZEM HYDROCHLORIDE [Suspect]
     Active Substance: DILTIAZEM HYDROCHLORIDE
     Indication: Cardiac disorder
     Route: 048
     Dates: start: 1999, end: 2017
  2. DILTIAZEM HYDROCHLORIDE [Suspect]
     Active Substance: DILTIAZEM HYDROCHLORIDE
     Dosage: IN THE AFTERNOON
     Route: 048
     Dates: end: 2017
  3. DILTIAZEM HYDROCHLORIDE [Suspect]
     Active Substance: DILTIAZEM HYDROCHLORIDE
     Indication: Cardiac disorder
     Dosage: 90 MG IN THE MORNING AND EVENING
     Route: 048
     Dates: start: 2017
  4. VITAMIN B12 [Concomitant]
     Active Substance: CYANOCOBALAMIN
     Indication: Product used for unknown indication
  5. IRON [Concomitant]
     Active Substance: IRON
     Indication: Product used for unknown indication
  6. ISOSORBIDE MONONITRATE [Concomitant]
     Active Substance: ISOSORBIDE MONONITRATE
     Indication: Product used for unknown indication
  7. ATORVASTATIN [Concomitant]
     Active Substance: ATORVASTATIN
     Indication: Product used for unknown indication
  8. EZETIMIBE [Concomitant]
     Active Substance: EZETIMIBE
     Indication: Product used for unknown indication
  9. SERETIDE [Concomitant]
     Active Substance: FLUTICASONE PROPIONATE\SALMETEROL XINAFOATE
     Indication: Product used for unknown indication
  10. ALBUTEROL [Concomitant]
     Active Substance: ALBUTEROL
     Indication: Product used for unknown indication

REACTIONS (2)
  - Myocardial infarction [Unknown]
  - Off label use [Unknown]

NARRATIVE: CASE EVENT DATE: 20170101
